FAERS Safety Report 9240295 (Version 1)
Quarter: 2013Q1

REPORT INFORMATION
  Report Type: Spontaneous
  Country: None (occurrence: None)
  Receive Date: 20121102
  Receipt Date: 20121102
  Transmission Date: 20140127
  Serious: Yes (Hospitalization)
  Sender: FDA-Public Use
  Company Number: 134680

PATIENT
  Age: 72 Year
  Sex: Female

DRUGS (1)
  1. LEUCOVORIN CALCIUM [Suspect]
     Route: 042
     Dates: start: 20120409, end: 20120510

REACTIONS (2)
  - Fatigue [None]
  - Disease progression [None]
